FAERS Safety Report 8133334-8 (Version None)
Quarter: 2012Q1

REPORT INFORMATION
  Report Type: 
  Country: None (occurrence: None)
  Receive Date: 20120213
  Receipt Date: 20120207
  Transmission Date: 20120608
  Serious: Yes (Other)
  Sender: FDA-Public Use
  Company Number: US-ROCHE-794292

PATIENT
  Sex: Female
  Weight: 58.112 kg

DRUGS (1)
  1. ACCUTANE [Suspect]
     Indication: ACNE CYSTIC
     Route: 065
     Dates: start: 20010801, end: 20011130

REACTIONS (9)
  - ANAEMIA [None]
  - PANIC ATTACK [None]
  - CROHN'S DISEASE [None]
  - INFLAMMATORY BOWEL DISEASE [None]
  - ARTHRITIS [None]
  - WEIGHT INCREASED [None]
  - ALOPECIA [None]
  - DEPRESSION [None]
  - INSOMNIA [None]
